FAERS Safety Report 20172170 (Version 1)
Quarter: 2021Q4

REPORT INFORMATION
  Report Type: Spontaneous
  Country: US (occurrence: US)
  Receive Date: 20211210
  Receipt Date: 20211210
  Transmission Date: 20220303
  Serious: No
  Sender: FDA-Public Use
  Company Number: US-NOVOPROD-796173

PATIENT
  Sex: Female

DRUGS (3)
  1. LEVEMIR [Suspect]
     Active Substance: INSULIN DETEMIR
     Dosage: INCREASED TO 35 IN AM TO 55
  2. LEVEMIR [Suspect]
     Active Substance: INSULIN DETEMIR
     Indication: Product used for unknown indication
     Dosage: 25 UNITS IN AM AND 55 IN PM
     Route: 065
  3. GLYXAMBI [Concomitant]
     Active Substance: EMPAGLIFLOZIN\LINAGLIPTIN
     Indication: Product used for unknown indication
     Dosage: 25/5 MG, QD
     Route: 048

REACTIONS (2)
  - Vision blurred [Not Recovered/Not Resolved]
  - Blood glucose increased [Not Recovered/Not Resolved]

NARRATIVE: CASE EVENT DATE: 20210201
